FAERS Safety Report 6486077-0 (Version None)
Quarter: 2009Q4

REPORT INFORMATION
  Report Type: 
  Country: None (occurrence: None)
  Receive Date: 20091207
  Receipt Date: 20091123
  Transmission Date: 20100525
  Serious: Yes (Death)
  Sender: FDA-Public Use
  Company Number: 2009AC000450

PATIENT
  Age: 69 Year
  Sex: Female

DRUGS (28)
  1. DIGOXIN [Suspect]
     Dosage: 0.25 MG; PO
     Route: 048
     Dates: start: 20061101
  2. DIGOXIN [Suspect]
     Dosage: 0.125 MG; PO
     Route: 048
  3. ATROVENT [Concomitant]
  4. PROVENTIL [Concomitant]
  5. LEVAQUIN [Concomitant]
  6. PREDNISONE [Concomitant]
  7. NAPROXEN [Concomitant]
  8. PROPOXYPHENE-N [Concomitant]
  9. RANITIDINE [Concomitant]
  10. CHLORDIAZEPOXIDE [Concomitant]
  11. LISINOPRIL [Concomitant]
  12. PLAVIX [Concomitant]
  13. XOPENEX [Concomitant]
  14. ASPIRIN [Concomitant]
  15. PROTONIX [Concomitant]
  16. FUROSEMIDE [Concomitant]
  17. KLOR-CON [Concomitant]
  18. METOPROLOL TARTRATE [Concomitant]
  19. ACETAMINOPHEN AND HYDROCODONE BITARTRATE [Concomitant]
  20. ALPRAZOLAM [Concomitant]
  21. CIPRO [Concomitant]
  22. ALBUTEROL [Concomitant]
  23. AMOXICILLIN [Concomitant]
  24. IPRATROPIUM [Concomitant]
  25. NAPROSYN [Concomitant]
  26. ZANTAC [Concomitant]
  27. DARVOCET [Concomitant]
  28. CARDIZEM [Concomitant]

REACTIONS (9)
  - ANGINA PECTORIS [None]
  - DECREASED ACTIVITY [None]
  - DISCOMFORT [None]
  - DYSPNOEA [None]
  - ECONOMIC PROBLEM [None]
  - HEADACHE [None]
  - MULTIPLE INJURIES [None]
  - TACHYCARDIA [None]
  - UNEVALUABLE EVENT [None]
